FAERS Safety Report 17445167 (Version 3)
Quarter: 2020Q2

REPORT INFORMATION
  Report Type: Spontaneous
  Country: US (occurrence: US)
  Receive Date: 20200221
  Receipt Date: 20200416
  Transmission Date: 20200713
  Serious: No
  Sender: FDA-Public Use
  Company Number: US-PFIZER INC-2020076651

PATIENT
  Age: 82 Year
  Sex: Female
  Weight: 60.32 kg

DRUGS (2)
  1. PREMARIN [Suspect]
     Active Substance: ESTROGENS, CONJUGATED
     Indication: PREMATURE MENOPAUSE
     Dosage: 1.25 MG, 1X/DAY
     Dates: start: 1971
  2. PREMARIN [Suspect]
     Active Substance: ESTROGENS, CONJUGATED
     Indication: MENOPAUSE
     Dosage: 1.25 MG, 1X/DAY
     Route: 048
     Dates: start: 200603

REACTIONS (7)
  - Mood swings [Unknown]
  - Malaise [Unknown]
  - Alopecia [Unknown]
  - Breast atrophy [Unknown]
  - Insomnia [Unknown]
  - Asthenia [Unknown]
  - Vulvovaginal dryness [Unknown]
